FAERS Safety Report 25498217 (Version 1)
Quarter: 2025Q3

REPORT INFORMATION
  Report Type: Spontaneous
  Country: EU (occurrence: EU)
  Receive Date: 20250701
  Receipt Date: 20250701
  Transmission Date: 20251020
  Serious: Yes (Hospitalization, Other)
  Sender: TAKEDA
  Company Number: EU-TAKEDA-2025TUS057768

PATIENT
  Age: 9 Year
  Sex: Female

DRUGS (24)
  1. METHYLPHENIDATE HYDROCHLORIDE [Suspect]
     Active Substance: METHYLPHENIDATE HYDROCHLORIDE
     Indication: Attention deficit hyperactivity disorder
  2. METHYLPHENIDATE HYDROCHLORIDE [Suspect]
     Active Substance: METHYLPHENIDATE HYDROCHLORIDE
     Indication: Self-destructive behaviour
  3. GUANFACINE HYDROCHLORIDE [Suspect]
     Active Substance: GUANFACINE HYDROCHLORIDE
     Indication: Attention deficit hyperactivity disorder
  4. GUANFACINE HYDROCHLORIDE [Suspect]
     Active Substance: GUANFACINE HYDROCHLORIDE
     Indication: Self-destructive behaviour
  5. SERTRALINE [Suspect]
     Active Substance: SERTRALINE HYDROCHLORIDE
     Indication: Attention deficit hyperactivity disorder
     Dosage: 150 MILLIGRAM, QD
  6. SERTRALINE [Suspect]
     Active Substance: SERTRALINE HYDROCHLORIDE
     Indication: Self-destructive behaviour
  7. FLUOXETINE [Suspect]
     Active Substance: FLUOXETINE HYDROCHLORIDE
     Indication: Attention deficit hyperactivity disorder
  8. FLUOXETINE [Suspect]
     Active Substance: FLUOXETINE HYDROCHLORIDE
     Indication: Self-destructive behaviour
  9. TOPIRAMATE [Suspect]
     Active Substance: TOPIRAMATE
     Indication: Attention deficit hyperactivity disorder
     Dosage: 95 MILLIGRAM, QD
  10. TOPIRAMATE [Suspect]
     Active Substance: TOPIRAMATE
     Indication: Self-destructive behaviour
  11. ARIPIPRAZOLE [Suspect]
     Active Substance: ARIPIPRAZOLE
     Indication: Attention deficit hyperactivity disorder
     Dosage: 10 MILLIGRAM, QD
  12. ARIPIPRAZOLE [Suspect]
     Active Substance: ARIPIPRAZOLE
     Indication: Self-destructive behaviour
  13. CHLORPROMAZINE [Suspect]
     Active Substance: CHLORPROMAZINE
     Indication: Attention deficit hyperactivity disorder
  14. CHLORPROMAZINE [Suspect]
     Active Substance: CHLORPROMAZINE
     Indication: Self-destructive behaviour
  15. NALMEFENE [Suspect]
     Active Substance: NALMEFENE
     Indication: Attention deficit hyperactivity disorder
  16. NALMEFENE [Suspect]
     Active Substance: NALMEFENE
     Indication: Self-destructive behaviour
  17. VALPROATE [Suspect]
     Active Substance: VALPROIC ACID
     Indication: Attention deficit hyperactivity disorder
  18. VALPROATE [Suspect]
     Active Substance: VALPROIC ACID
     Indication: Self-destructive behaviour
  19. RISPERIDONE [Suspect]
     Active Substance: RISPERIDONE
     Indication: Attention deficit hyperactivity disorder
  20. RISPERIDONE [Suspect]
     Active Substance: RISPERIDONE
     Indication: Self-destructive behaviour
  21. CLOMIPRAMINE [Suspect]
     Active Substance: CLOMIPRAMINE
     Indication: Attention deficit hyperactivity disorder
  22. CLOMIPRAMINE [Suspect]
     Active Substance: CLOMIPRAMINE
     Indication: Self-destructive behaviour
  23. CLOZAPINE [Suspect]
     Active Substance: CLOZAPINE
     Indication: Attention deficit hyperactivity disorder
     Dosage: 150 MILLIGRAM, QD
  24. CLOZAPINE [Suspect]
     Active Substance: CLOZAPINE
     Indication: Self-destructive behaviour

REACTIONS (6)
  - Attention deficit hyperactivity disorder [Unknown]
  - Self-destructive behaviour [Unknown]
  - Drug ineffective [Unknown]
  - Condition aggravated [Unknown]
  - Off label use [Unknown]
  - Inhibitory drug interaction [Unknown]
